FAERS Safety Report 4939336-4 (Version None)
Quarter: 2006Q1

REPORT INFORMATION
  Report Type: 
  Country: None (occurrence: None)
  Receive Date: 20060306
  Receipt Date: 20060215
  Transmission Date: 20060701
  Serious: Yes (Death)
  Sender: FDA-Public Use
  Company Number: 222094

PATIENT
  Age: 62 Year
  Sex: 0
  Weight: 55 kg

DRUGS (7)
  1. MABTHERA (RITUXIMAB) CONC FOR SOLUTION FOR INFUSION [Suspect]
     Indication: LYMPHOMA
     Dosage: 585 MG, INTRAVENOUS
     Route: 042
     Dates: start: 20051229, end: 20060119
  2. CYCLOPHOSPHAMIDE [Suspect]
     Indication: LYMPHOMA
     Dosage: 1170 INTRAVENOUS
     Route: 042
     Dates: start: 20051229, end: 20060119
  3. ADRIAMYCIN PFS [Suspect]
     Indication: LYMPHOMA
     Dosage: 80
     Dates: start: 20051229, end: 20060119
  4. VINCRISTINE [Suspect]
     Indication: LYMPHOMA
     Dosage: 2 , INTRAVENOUS
     Route: 042
     Dates: start: 20051229, end: 20060119
  5. PREDNISONE TAB [Suspect]
     Indication: LYMPHOMA
     Dosage: 100, ORAL
     Route: 048
     Dates: start: 20051229, end: 20060119
  6. HIBOR (BEMIPARIN SODIUM) [Suspect]
     Indication: VENOUS THROMBOSIS
     Dosage: 75 IU, SUBCUTANEOUS
     Route: 058
     Dates: start: 20051207, end: 20060207
  7. MORPHINE SULFATE [Concomitant]

REACTIONS (3)
  - BLOOD LACTATE DEHYDROGENASE INCREASED [None]
  - CEREBRAL HAEMORRHAGE [None]
  - SUBARACHNOID HAEMORRHAGE [None]
